FAERS Safety Report 4389132-4 (Version None)
Quarter: 2004Q3

REPORT INFORMATION
  Report Type: 
  Country: None (occurrence: None)
  Receive Date: 20040702
  Receipt Date: 20030620
  Transmission Date: 20050211
  Serious: No
  Sender: FDA-Public Use
  Company Number: US-GLAXOSMITHKLINE-A0413522A

PATIENT
  Sex: Male

DRUGS (2)
  1. PARNATE [Suspect]
     Indication: MAJOR DEPRESSION
     Dosage: 1MG FOUR TIMES PER DAY
     Route: 048
  2. TRILAFON [Concomitant]

REACTIONS (5)
  - CARDIOVASCULAR DISORDER [None]
  - FATIGUE [None]
  - FEELING ABNORMAL [None]
  - INSOMNIA [None]
  - OEDEMA PERIPHERAL [None]
